FAERS Safety Report 14138470 (Version 1)
Quarter: 2017Q4

REPORT INFORMATION
  Report Type: Spontaneous
  Country: US (occurrence: US)
  Receive Date: 20171027
  Receipt Date: 20171027
  Transmission Date: 20180321
  Serious: No
  Sender: FDA-Public Use
  Company Number: US-ROCHE-1892063

PATIENT
  Age: 5 Month
  Sex: Male
  Weight: 6.58 kg

DRUGS (1)
  1. TAMIFLU [Suspect]
     Active Substance: OSELTAMIVIR PHOSPHATE
     Indication: INFLUENZA
     Route: 048
     Dates: start: 20170201

REACTIONS (6)
  - Retching [Not Recovered/Not Resolved]
  - Oropharyngeal pain [Unknown]
  - Dysgeusia [Unknown]
  - Product quality issue [Unknown]
  - Cough [Unknown]
  - Vomiting [Not Recovered/Not Resolved]

NARRATIVE: CASE EVENT DATE: 201702
